FAERS Safety Report 7953748-6 (Version None)
Quarter: 2011Q4

REPORT INFORMATION
  Report Type: 
  Country: None (occurrence: None)
  Receive Date: 20111202
  Receipt Date: 20111123
  Transmission Date: 20120403
  Serious: Yes (Other)
  Sender: FDA-Public Use
  Company Number: US-JNJFOC-20111111399

PATIENT
  Age: 67 Year
  Sex: Male

DRUGS (3)
  1. TPN [Concomitant]
     Indication: PRODUCT USED FOR UNKNOWN INDICATION
     Route: 065
  2. MINOXIDIL [Suspect]
     Route: 061
  3. MINOXIDIL [Suspect]
     Indication: ALOPECIA
     Dosage: 1/2 CAPFUL
     Route: 061
     Dates: start: 20111114, end: 20111114

REACTIONS (2)
  - APPLICATION SITE BURN [None]
  - APPLICATION SITE SCAB [None]
